FAERS Safety Report 4592556-3 (Version None)
Quarter: 2005Q1

REPORT INFORMATION
  Report Type: 
  Country: None (occurrence: None)
  Receive Date: 20050228
  Receipt Date: 20050214
  Transmission Date: 20050727
  Serious: Yes (Hospitalization)
  Sender: FDA-Public Use
  Company Number: US-JNJFOC-20041200890

PATIENT
  Sex: Female

DRUGS (3)
  1. ELMIRON [Suspect]
     Indication: CYSTITIS INTERSTITIAL
     Route: 049
  2. PROZAC [Concomitant]
  3. PYRIDIUM [Concomitant]

REACTIONS (1)
  - FEMORAL NECK FRACTURE [None]
